FAERS Safety Report 18942000 (Version 1)
Quarter: 2021Q1

REPORT INFORMATION
  Report Type: Spontaneous
  Country: US (occurrence: US)
  Receive Date: 20210225
  Receipt Date: 20210225
  Transmission Date: 20210420
  Serious: Yes (Other)
  Sender: FDA-Public Use
  Company Number: US-TEVA-2021-US-1882836

PATIENT
  Age: 67 Year
  Sex: Male

DRUGS (20)
  1. FLUOXETINE [Concomitant]
     Active Substance: FLUOXETINE HYDROCHLORIDE
     Indication: PRODUCT USED FOR UNKNOWN INDICATION
     Dosage: 40 MILLIGRAM DAILY;
     Route: 065
  2. ATENOLOL. [Concomitant]
     Active Substance: ATENOLOL
     Indication: PRODUCT USED FOR UNKNOWN INDICATION
     Dosage: 50 MILLIGRAM DAILY;
     Route: 065
  3. ATORVASTATIN [Concomitant]
     Active Substance: ATORVASTATIN
     Indication: PRODUCT USED FOR UNKNOWN INDICATION
     Dosage: 40 MILLIGRAM DAILY;
     Route: 065
  4. DELTA?9?TETRAHYDROCANNABINOL [Interacting]
     Active Substance: DRONABINOL
     Indication: ARTHRALGIA
     Dosage: UP TO 0.1MG/1ML OIL DROPS; (50:1; DRONABINOL: CANNABIDIOL)
     Route: 060
  5. IBUPROFEN. [Concomitant]
     Active Substance: IBUPROFEN
     Dosage: AS NEEDED FOR JOINT PAIN
     Route: 065
  6. LISINOPRIL. [Concomitant]
     Active Substance: LISINOPRIL
     Indication: PRODUCT USED FOR UNKNOWN INDICATION
     Dosage: 20 MILLIGRAM DAILY;
     Route: 065
  7. FAMOTIDINE. [Concomitant]
     Active Substance: FAMOTIDINE
     Indication: PRODUCT USED FOR UNKNOWN INDICATION
     Dosage: 40 MILLIGRAM DAILY;
     Route: 065
  8. WARFARIN [Interacting]
     Active Substance: WARFARIN
     Dosage: ALTERNATE DAY
     Route: 065
  9. DELTA?9?TETRAHYDROCANNABINOL [Interacting]
     Active Substance: DRONABINOL
     Dosage: 1 ML TRICE DAILY (DOUBLING OF THE TOTAL DAILY DOSE )
     Route: 060
  10. METFORMIN [Concomitant]
     Active Substance: METFORMIN HYDROCHLORIDE
     Indication: DIABETES MELLITUS
     Dosage: 1700 MILLIGRAM DAILY;
     Route: 065
  11. OMEPRAZOLE. [Concomitant]
     Active Substance: OMEPRAZOLE
     Indication: PRODUCT USED FOR UNKNOWN INDICATION
     Dosage: 20 MILLIGRAM DAILY;
     Route: 065
  12. CANNABIDIOL [Concomitant]
     Active Substance: CANNABIDIOL
     Indication: NECK PAIN
     Dosage: 0.1MG/1ML OIL DROPS
     Route: 060
  13. WARFARIN [Suspect]
     Active Substance: WARFARIN
     Indication: THROMBOSIS PROPHYLAXIS
     Dosage: ALTERNATE DAY
     Route: 065
  14. CANNABIDIOL [Concomitant]
     Active Substance: CANNABIDIOL
     Indication: ARTHRALGIA
     Dosage: 5MG/1ML OIL DROPS
     Route: 060
  15. NORTRIPTYLINE [Concomitant]
     Active Substance: NORTRIPTYLINE
     Indication: PRODUCT USED FOR UNKNOWN INDICATION
     Dosage: 75 MILLIGRAM DAILY;
     Route: 065
  16. DOCUSATE [Concomitant]
     Active Substance: DOCUSATE
     Indication: PRODUCT USED FOR UNKNOWN INDICATION
     Dosage: UP TO 3 TIMES DAILY
     Route: 065
  17. GLIPIZIDE. [Concomitant]
     Active Substance: GLIPIZIDE
     Indication: PRODUCT USED FOR UNKNOWN INDICATION
     Dosage: 20 MILLIGRAM DAILY;
     Route: 065
  18. DELTA?9?TETRAHYDROCANNABINOL [Interacting]
     Active Substance: DRONABINOL
     Indication: NECK PAIN
     Dosage: 4.9MG/ML OIL DROPS (0:1; DRONABINOL: CANNABIDIOL)
     Route: 060
  19. RIVAROXABAN [Concomitant]
     Active Substance: RIVAROXABAN
     Indication: ANTICOAGULANT THERAPY
     Route: 065
  20. ASPIRIN. [Concomitant]
     Active Substance: ASPIRIN
     Indication: PRODUCT USED FOR UNKNOWN INDICATION
     Dosage: 81 MILLIGRAM DAILY;
     Route: 065

REACTIONS (6)
  - Dry mouth [Recovered/Resolved]
  - Drug titration error [Unknown]
  - Anticoagulation drug level above therapeutic [Recovered/Resolved]
  - Dose calculation error [Unknown]
  - Dizziness [Recovered/Resolved]
  - Drug interaction [Recovered/Resolved]
